FAERS Safety Report 10088924 (Version 1)
Quarter: 2014Q2

REPORT INFORMATION
  Report Type: Report from Study
  Country: JP (occurrence: JP)
  Receive Date: 20140421
  Receipt Date: 20140421
  Transmission Date: 20141212
  Serious: Yes (Other)
  Sender: FDA-Public Use
  Company Number: JP-ROCHE-1383393

PATIENT
  Sex: 0

DRUGS (9)
  1. TOCILIZUMAB [Suspect]
     Indication: RHEUMATOID ARTHRITIS
     Route: 065
  2. METHOTREXATE [Concomitant]
  3. CYCLOSPORINE [Concomitant]
  4. TACROLIMUS [Concomitant]
  5. MIZORIBINE [Concomitant]
  6. BUCILLAMINE [Concomitant]
  7. SALAZOSULFAPYRIDINE [Concomitant]
  8. ACTARIT [Concomitant]
  9. LEFLUNOMIDE [Concomitant]

REACTIONS (8)
  - Pneumocystis jirovecii pneumonia [Unknown]
  - Small intestinal perforation [Unknown]
  - Cellulitis [Unknown]
  - Lymphoma [Unknown]
  - Pruritus [Unknown]
  - Flushing [Unknown]
  - Nausea [Unknown]
  - Drug ineffective [Unknown]
